APPROVED DRUG PRODUCT: PALONOSETRON HYDROCHLORIDE
Active Ingredient: PALONOSETRON HYDROCHLORIDE
Strength: EQ 0.075MG BASE/1.5ML (EQ 0.05MG BASE/ML)
Dosage Form/Route: INJECTABLE;INTRAVENOUS
Application: A201533 | Product #001
Applicant: DR REDDYS LABORATORIES LTD
Approved: Apr 21, 2016 | RLD: No | RS: No | Type: DISCN